FAERS Safety Report 6115663-2 (Version None)
Quarter: 2009Q1

REPORT INFORMATION
  Report Type: 
  Country: None (occurrence: None)
  Receive Date: 20090313
  Receipt Date: 20090304
  Transmission Date: 20090719
  Serious: Yes (Other)
  Sender: FDA-Public Use
  Company Number: GR-B.I. PHARMACEUTICALS,INC./RIDGEFIELD-2009-DE-00775GB

PATIENT
  Age: 46 Year
  Sex: Female

DRUGS (1)
  1. MOVATEC [Suspect]
     Indication: BACK PAIN
     Dosage: 15MG
     Route: 048
     Dates: start: 20081216, end: 20081218

REACTIONS (2)
  - AGITATION [None]
  - INSOMNIA [None]
